FAERS Safety Report 4478310-1 (Version None)
Quarter: 2004Q4

REPORT INFORMATION
  Report Type: 
  Country: None (occurrence: None)
  Receive Date: 20041019
  Receipt Date: 20041008
  Transmission Date: 20050328
  Serious: Yes (Hospitalization)
  Sender: FDA-Public Use
  Company Number: DE-ROCHE-382630

PATIENT
  Age: 67 Year
  Sex: Female

DRUGS (3)
  1. PEG-INTERFERON ALFA 2A (RO 25-8310) [Suspect]
     Route: 065
     Dates: start: 20040526
  2. RIBAVIRIN [Suspect]
     Dosage: TAKEN ONCE IN THE MORNING AND ONCE IN THE EVENING.
     Route: 065
     Dates: start: 20040526
  3. AMANTADINE HCL [Suspect]
     Dosage: TWO TAKEN IN THE MORNING AND TWO TAKEN IN THE EVENING WITH NONE TAKEN AT NIGHT.
     Route: 065
     Dates: start: 20040526

REACTIONS (2)
  - HYPOTONIA [None]
  - SYNCOPE [None]
